FAERS Safety Report 19453686 (Version 1)
Quarter: 2021Q2

REPORT INFORMATION
  Report Type: Spontaneous
  Country: IT (occurrence: IT)
  Receive Date: 20210623
  Receipt Date: 20210623
  Transmission Date: 20210717
  Serious: Yes (Other)
  Sender: FDA-Public Use
  Company Number: IT-BAYER-2021-160664

PATIENT
  Age: 75 Year
  Sex: Male
  Weight: 97 kg

DRUGS (6)
  1. KCL [Concomitant]
     Active Substance: POTASSIUM CHLORIDE
     Dosage: UNK
  2. CIPROXIN 500 MG [Suspect]
     Active Substance: CIPROFLOXACIN
     Dosage: 500 MG, QD
     Dates: start: 20210428, end: 20210601
  3. TENSOGARD [Concomitant]
     Active Substance: FOSINOPRIL SODIUM
     Dosage: UNK
  4. ESIDREX [Concomitant]
     Active Substance: HYDROCHLOROTHIAZIDE
     Dosage: UNK
  5. ITRACONAZOLO EG [Interacting]
     Active Substance: ITRACONAZOLE
     Indication: FUNGAL INFECTION
     Dosage: 1 DF, QD
     Dates: start: 20210428, end: 20210606
  6. NORVASC [Concomitant]
     Active Substance: AMLODIPINE BESYLATE
     Dosage: UNK

REACTIONS (5)
  - Heart rate increased [Recovering/Resolving]
  - Fatigue [Recovering/Resolving]
  - Malaise [Recovering/Resolving]
  - Arrhythmia [Recovering/Resolving]
  - Drug interaction [Recovering/Resolving]

NARRATIVE: CASE EVENT DATE: 20210605
